FAERS Safety Report 8980181 (Version 1)
Quarter: 2012Q4

REPORT INFORMATION
  Report Type: 
  Country: MX (occurrence: MX)
  Receive Date: 20121221
  Receipt Date: 20121221
  Transmission Date: 20130627
  Serious: Yes (Other)
  Sender: FDA-Public Use
  Company Number: PHHY2012MX117563

PATIENT
  Age: 71 Year
  Sex: Female

DRUGS (3)
  1. ACLASTA [Suspect]
     Indication: OSTEOPOROSIS
     Dosage: 5 mg/100ml UNK
     Route: 042
     Dates: start: 2008
  2. ACLASTA [Suspect]
     Dosage: 5 mg, UNK
     Route: 042
     Dates: start: 2010
  3. LIPITOR [Concomitant]
     Indication: BLOOD TRIGLYCERIDES INCREASED
     Dosage: 20 mg, UNK
     Dates: start: 200812

REACTIONS (7)
  - Toxic nodular goitre [Unknown]
  - Joint injury [Recovered/Resolved]
  - Pain in extremity [Recovered/Resolved]
  - Blood triglycerides increased [Recovered/Resolved]
  - Spinal pain [Not Recovered/Not Resolved]
  - Back pain [Not Recovered/Not Resolved]
  - Blood pressure increased [Unknown]
